FAERS Safety Report 15895768 (Version 2)
Quarter: 2019Q1

REPORT INFORMATION
  Report Type: Spontaneous
  Country: CA (occurrence: CA)
  Receive Date: 20190131
  Receipt Date: 20190321
  Transmission Date: 20190417
  Serious: Yes (Other)
  Sender: FDA-Public Use
  Company Number: CA-PFIZER INC-2018131573

PATIENT
  Age: 64 Year
  Sex: Female

DRUGS (10)
  1. XELJANZ [Suspect]
     Active Substance: TOFACITINIB CITRATE
     Dosage: 5 MG, 2X/DAY
     Route: 048
     Dates: start: 20190314
  2. XELJANZ [Suspect]
     Active Substance: TOFACITINIB CITRATE
     Dosage: 5 MG, 2X/DAY
     Route: 048
     Dates: start: 20180604, end: 20180605
  3. METHOTREXATE SODIUM. [Suspect]
     Active Substance: METHOTREXATE SODIUM
     Dosage: 25 MG, WEEKLY
     Route: 048
     Dates: end: 20180520
  4. FOLIC ACID. [Concomitant]
     Active Substance: FOLIC ACID
     Dosage: UNK
  5. XELJANZ [Suspect]
     Active Substance: TOFACITINIB CITRATE
     Indication: RHEUMATOID ARTHRITIS
     Dosage: 5 MG, 2X/DAY
     Route: 048
     Dates: start: 20180313, end: 20180523
  6. METHOTREXATE SODIUM. [Suspect]
     Active Substance: METHOTREXATE SODIUM
     Dosage: UNK
     Route: 048
     Dates: start: 20180603, end: 20181216
  7. METHOTREXATE SODIUM. [Suspect]
     Active Substance: METHOTREXATE SODIUM
     Indication: RHEUMATOID ARTHRITIS
     Dosage: 20 MG, WEEKLY
     Route: 048
  8. TYLENOL ARTHRITIS PAIN [Concomitant]
     Active Substance: ACETAMINOPHEN
     Dosage: UNK
  9. XELJANZ [Suspect]
     Active Substance: TOFACITINIB CITRATE
     Dosage: 5 MG, 2X/DAY
     Route: 048
     Dates: start: 20180325, end: 20181216
  10. XELJANZ [Suspect]
     Active Substance: TOFACITINIB CITRATE
     Dosage: 5 MG, 2X/DAY
     Route: 048
     Dates: start: 2018, end: 201901

REACTIONS (28)
  - Pneumonia [Unknown]
  - Cellulitis [Not Recovered/Not Resolved]
  - Swelling [Not Recovered/Not Resolved]
  - Back pain [Unknown]
  - Stress [Unknown]
  - Flank pain [Unknown]
  - Anaphylactic shock [Unknown]
  - Drug effect incomplete [Not Recovered/Not Resolved]
  - Myalgia [Unknown]
  - Erythema [Not Recovered/Not Resolved]
  - Rash [Not Recovered/Not Resolved]
  - Pain [Unknown]
  - Pruritus [Unknown]
  - Chromaturia [Unknown]
  - Condition aggravated [Unknown]
  - Sinusitis [Unknown]
  - Hepatic pain [Unknown]
  - Pain in extremity [Unknown]
  - Nausea [Unknown]
  - Hepatomegaly [Unknown]
  - Agitation [Unknown]
  - Renal pain [Recovered/Resolved]
  - Feeling abnormal [Unknown]
  - Fungal infection [Not Recovered/Not Resolved]
  - Headache [Unknown]
  - Facial pain [Unknown]
  - Nasopharyngitis [Unknown]
  - Amylase abnormal [Unknown]

NARRATIVE: CASE EVENT DATE: 2018
